FAERS Safety Report 5413737-2 (Version None)
Quarter: 2007Q3

REPORT INFORMATION
  Report Type: 
  Country: None (occurrence: None)
  Receive Date: 20070814
  Receipt Date: 20070803
  Transmission Date: 20080115
  Serious: Yes (Other)
  Sender: FDA-Public Use
  Company Number: CA-JNJFOC-20070505453

PATIENT
  Sex: Male
  Weight: 74 kg

DRUGS (57)
  1. REMICADE [Suspect]
     Dosage: 5 OF 8 INFUSIONS RECEIVED
     Route: 042
  2. REMICADE [Suspect]
     Dosage: 5 OF 8 INFUSIONS RECEIVED
     Route: 042
  3. REMICADE [Suspect]
     Dosage: 5 OF 8 INFUSIONS RECEIVED
     Route: 042
  4. REMICADE [Suspect]
     Dosage: 5 OF 8 INFUSIONS RECEIVED
     Route: 042
  5. REMICADE [Suspect]
     Indication: CROHN'S DISEASE
     Dosage: 5 OF 8 INFUSIONS RECEIVED
     Route: 042
  6. METHOTREXATE [Suspect]
     Dosage: 22 OF 50 INJECTIONS RECEIVED
     Route: 050
  7. METHOTREXATE [Suspect]
     Dosage: 22 OF 50 INJECTIONS RECEIVED
     Route: 050
  8. METHOTREXATE [Suspect]
     Dosage: 22 OF 50 INJECTIONS RECEIVED
     Route: 050
  9. METHOTREXATE [Suspect]
     Dosage: 22 OF 50 INJECTIONS RECEIVED
     Route: 050
  10. METHOTREXATE [Suspect]
     Dosage: 22 OF 50 INJECTIONS RECEIVED
     Route: 050
  11. METHOTREXATE [Suspect]
     Dosage: 22 OF 50 INJECTIONS RECEIVED
     Route: 050
  12. METHOTREXATE [Suspect]
     Dosage: 22 OF 50 INJECTIONS RECEIVED
     Route: 050
  13. METHOTREXATE [Suspect]
     Dosage: 22 OF 50 INJECTIONS RECEIVED
     Route: 050
  14. METHOTREXATE [Suspect]
     Dosage: 22 OF 50 INJECTIONS RECEIVED
     Route: 050
  15. METHOTREXATE [Suspect]
     Dosage: 22 OF 50 INJECTIONS RECEIVED
     Route: 050
  16. METHOTREXATE [Suspect]
     Dosage: 22 OF 50 INJECTIONS RECEIVED
     Route: 050
  17. METHOTREXATE [Suspect]
     Dosage: 22 OF 50 INJECTIONS RECEIVED
     Route: 050
  18. METHOTREXATE [Suspect]
     Dosage: 22 OF 50 INJECTIONS RECEIVED
     Route: 050
  19. METHOTREXATE [Suspect]
     Dosage: 22 OF 50 INJECTIONS RECEIVED
     Route: 050
  20. METHOTREXATE [Suspect]
     Dosage: 22 OF 50 INJECTIONS RECEIVED
     Route: 050
  21. METHOTREXATE [Suspect]
     Dosage: 22 OF 50 INJECTIONS RECEIVED
     Route: 050
  22. METHOTREXATE [Suspect]
     Dosage: 22 OF 50 INJECTIONS RECEIVED
     Route: 050
  23. METHOTREXATE [Suspect]
     Dosage: 22 OF 50 INJECTIONS RECEIVED
     Route: 050
  24. METHOTREXATE [Suspect]
     Dosage: 22 OF 50 INJECTIONS RECEIVED
     Route: 050
  25. METHOTREXATE [Suspect]
     Dosage: 22 OF 50 INJECTIONS RECEIVED
     Route: 050
  26. METHOTREXATE [Suspect]
     Dosage: 22 OF 50 INJECTIONS RECEIVED
     Route: 050
  27. METHOTREXATE [Suspect]
     Indication: CROHN'S DISEASE
     Dosage: 22 OF 50 INJECTIONS RECEIVED
     Route: 050
  28. PLACEBO [Suspect]
     Dosage: 22 OF 50 INJECTIONS RECEIVED
     Route: 050
  29. PLACEBO [Suspect]
     Dosage: 22 OF 50 INJECTIONS RECEIVED
     Route: 050
  30. PLACEBO [Suspect]
     Dosage: 22 OF 50 INJECTIONS RECEIVED
     Route: 050
  31. PLACEBO [Suspect]
     Dosage: 22 OF 50 INJECTIONS RECEIVED
     Route: 050
  32. PLACEBO [Suspect]
     Dosage: 22 OF 50 INJECTIONS RECEIVED
     Route: 050
  33. PLACEBO [Suspect]
     Dosage: 22 OF 50 INJECTIONS RECEIVED
     Route: 050
  34. PLACEBO [Suspect]
     Dosage: 22 OF 50 INJECTIONS RECEIVED
     Route: 050
  35. PLACEBO [Suspect]
     Dosage: 22 OF 50 INJECTIONS RECEIVED
     Route: 050
  36. PLACEBO [Suspect]
     Dosage: 22 OF 50 INJECTIONS RECEIVED
     Route: 050
  37. PLACEBO [Suspect]
     Dosage: 22 OF 50 INJECTIONS RECEIVED
     Route: 050
  38. PLACEBO [Suspect]
     Dosage: 22 OF 50 INJECTIONS RECEIVED
     Route: 050
  39. PLACEBO [Suspect]
     Dosage: 22 OF 50 INJECTIONS RECEIVED
     Route: 050
  40. PLACEBO [Suspect]
     Dosage: 22 OF 50 INJECTIONS RECEIVED
     Route: 050
  41. PLACEBO [Suspect]
     Dosage: 22 OF 50 INJECTIONS RECEIVED
     Route: 050
  42. PLACEBO [Suspect]
     Dosage: 22 OF 50 INJECTIONS RECEIVED
     Route: 050
  43. PLACEBO [Suspect]
     Dosage: 22 OF 50 INJECTIONS RECEIVED
     Route: 050
  44. PLACEBO [Suspect]
     Dosage: 22 OF 50 INJECTIONS RECEIVED
     Route: 050
  45. PLACEBO [Suspect]
     Dosage: 22 OF 50 INJECTIONS RECEIVED
     Route: 050
  46. PLACEBO [Suspect]
     Dosage: 22 OF 50 INJECTIONS RECEIVED
     Route: 050
  47. PLACEBO [Suspect]
     Dosage: 22 OF 50 INJECTIONS RECEIVED
     Route: 050
  48. PLACEBO [Suspect]
     Dosage: 22 OF 50 INJECTIONS RECEIVED
     Route: 050
  49. PLACEBO [Suspect]
     Indication: CROHN'S DISEASE
     Dosage: 22 OF 50 INJECTIONS RECEIVED
     Route: 050
  50. OMEPRAZOLE [Concomitant]
     Indication: GASTROOESOPHAGEAL REFLUX DISEASE
     Route: 048
  51. LIPITOR [Concomitant]
     Indication: HYPERCHOLESTEROLAEMIA
     Route: 048
  52. ASPIRIN [Concomitant]
     Indication: CARDIOVASCULAR EVENT PROPHYLAXIS
     Route: 048
  53. ASCORBIC ACID [Concomitant]
     Indication: MEDICAL DIET
     Route: 048
  54. FERROUS FUMARATE [Concomitant]
     Indication: ANAEMIA
     Route: 048
  55. VITAMIN D3 [Concomitant]
     Indication: MEDICAL DIET
     Dosage: 400/U 2 PER DAY
     Route: 048
  56. MULTI-VITAMINS [Concomitant]
     Indication: MEDICAL DIET
     Route: 048
  57. TPN [Concomitant]
     Indication: MEDICAL DIET
     Route: 048

REACTIONS (2)
  - BASAL CELL CARCINOMA [None]
  - FISTULA [None]
